FAERS Safety Report 7514602-7 (Version None)
Quarter: 2011Q2

REPORT INFORMATION
  Report Type: 
  Country: None (occurrence: None)
  Receive Date: 20110422
  Receipt Date: 20100806
  Transmission Date: 20111010
  Serious: Yes (Hospitalization)
  Sender: FDA-Public Use
  Company Number: APP201000653

PATIENT
  Age: 63 Year
  Sex: Female
  Weight: 65 kg

DRUGS (1)
  1. HEPARIN SODIUM [Suspect]
     Indication: ARTERIAL THROMBOSIS

REACTIONS (2)
  - PERIPHERAL ISCHAEMIA [None]
  - HEPARIN-INDUCED THROMBOCYTOPENIA [None]
